FAERS Safety Report 10008866 (Version 2)
Quarter: 2014Q1

REPORT INFORMATION
  Report Type: Spontaneous
  Country: US (occurrence: US)
  Receive Date: 20140312
  Receipt Date: 20140312
  Transmission Date: 20141002
  Serious: No
  Sender: FDA-Public Use
  Company Number: US-INCYTE CORPORATION-2012IN000392

PATIENT
  Age: 69 Year
  Sex: Male
  Weight: 84 kg

DRUGS (9)
  1. JAKAFI [Suspect]
     Indication: MYELOFIBROSIS
     Dosage: 15 MG, BID
     Route: 048
     Dates: start: 20120211
  2. ALLOPURINOL [Concomitant]
     Dosage: 300 MG (100 MGX3 TABS), QD HS
     Route: 048
  3. ASA [Concomitant]
     Dosage: 81 MG, QD
     Route: 048
  4. SLOW FE 1 [Concomitant]
     Dosage: UNK, QD
     Route: 048
  5. TAMSULOSIN [Concomitant]
     Dosage: 0.4 MG, QD HS
     Route: 048
  6. WARFARIN [Concomitant]
     Dosage: 5 MG, MWF, 7.5 MG OTHER DAYS
     Route: 048
  7. BENAZEPRIL [Concomitant]
     Dosage: 80 MG (40 MG X2 TABS), QD
     Route: 048
  8. AMBIEN [Concomitant]
     Indication: INSOMNIA
     Dosage: 5 MG, QD PM
     Route: 048
  9. PERCOCET [Concomitant]
     Dosage: UNK, QD PM
     Route: 048

REACTIONS (1)
  - Arthralgia [Not Recovered/Not Resolved]
